FAERS Safety Report 18323275 (Version 1)
Quarter: 2020Q3

REPORT INFORMATION
  Report Type: Other
  Country: US (occurrence: US)
  Receive Date: 20200928
  Receipt Date: 20200928
  Transmission Date: 20201103
  Serious: Yes (Hospitalization, Other)
  Sender: FDA-Public Use
  Company Number: US-ROCHE-2403513

PATIENT
  Age: 52 Year
  Sex: Male
  Weight: 113.5 kg

DRUGS (4)
  1. CLONIDINE. [Suspect]
     Active Substance: CLONIDINE
     Indication: PRODUCT USED FOR UNKNOWN INDICATION
     Dosage: IMPLANTED PAIN PUMP
     Route: 065
     Dates: start: 201908, end: 201908
  2. DILAUDID [Suspect]
     Active Substance: HYDROMORPHONE HYDROCHLORIDE
     Indication: PAIN
     Dosage: IMPLANTED PAIN PUMP
     Route: 065
     Dates: start: 20181205
  3. GABAPENTIN. [Concomitant]
     Active Substance: GABAPENTIN
  4. OCREVUS [Suspect]
     Active Substance: OCRELIZUMAB
     Indication: PRIMARY PROGRESSIVE MULTIPLE SCLEROSIS
     Dosage: YES
     Route: 042
     Dates: start: 20190214

REACTIONS (6)
  - Asthenia [Not Recovered/Not Resolved]
  - Staphylococcal infection [Recovered/Resolved]
  - Fall [Unknown]
  - Diabetes mellitus [Unknown]
  - Spinal fracture [Not Recovered/Not Resolved]
  - Rash [Recovering/Resolving]

NARRATIVE: CASE EVENT DATE: 201905
